FAERS Safety Report 12657376 (Version 1)
Quarter: 2016Q3

REPORT INFORMATION
  Report Type: Report from Study
  Country: RO (occurrence: RO)
  Receive Date: 20160816
  Receipt Date: 20160816
  Transmission Date: 20161109
  Serious: Yes (Other)
  Sender: FDA-Public Use
  Company Number: RO-ABBVIE-16P-135-1701554-00

PATIENT
  Age: 61 Year
  Sex: Male

DRUGS (6)
  1. EXVIERA [Suspect]
     Active Substance: DASABUVIR
     Indication: HEPATITIS C
     Route: 048
     Dates: start: 201604
  2. ULTOP [Concomitant]
     Indication: GASTRIC POLYPS
     Dosage: 20 MG DAILY
     Route: 048
  3. VIEKIRAX [Suspect]
     Active Substance: OMBITASVIR\PARITAPREVIR\RITONAVIR
     Indication: HEPATITIS C
     Route: 048
     Dates: start: 201604
  4. RIBAVIRIN. [Concomitant]
     Active Substance: RIBAVIRIN
     Indication: HEPATITIS C
     Route: 048
  5. ULTOP [Concomitant]
     Indication: VARICES OESOPHAGEAL
  6. ULTOP [Concomitant]
     Indication: PORTAL HYPERTENSIVE GASTROPATHY

REACTIONS (2)
  - Hepatic cirrhosis [Recovered/Resolved]
  - Ascites [Unknown]

NARRATIVE: CASE EVENT DATE: 20160707
